FAERS Safety Report 5255623-7 (Version None)
Quarter: 2007Q1

REPORT INFORMATION
  Report Type: 
  Country: None (occurrence: None)
  Receive Date: 20061201
  Receipt Date: 20061027
  Transmission Date: 20070707
  Serious: No
  Sender: FDA-Public Use
  Company Number: 2006MP001156

PATIENT
  Age: 62 Year
  Sex: Male

DRUGS (3)
  1. DACOGEN [Suspect]
     Indication: MYELODYSPLASTIC SYNDROME
     Dosage: 20 MG/M**2; QD; IV
     Route: 042
     Dates: start: 20061003, end: 20061006
  2. TOPROL-XL [Concomitant]
  3. ZOCOR [Concomitant]

REACTIONS (4)
  - NEUTROPHIL COUNT DECREASED [None]
  - OFF LABEL USE [None]
  - PLATELET COUNT DECREASED [None]
  - WHITE BLOOD CELL COUNT DECREASED [None]
